FAERS Safety Report 16973412 (Version 1)
Quarter: 2019Q4

REPORT INFORMATION
  Report Type: Spontaneous
  Country: US (occurrence: US)
  Receive Date: 20191030
  Receipt Date: 20191030
  Transmission Date: 20200122
  Serious: No
  Sender: FDA-Public Use
  Company Number: US-ASTRAZENECA-2019SF50518

PATIENT
  Sex: Male

DRUGS (13)
  1. SODIUM CHLORIDE. [Concomitant]
     Active Substance: SODIUM CHLORIDE
  2. HYDROCORTISONE. [Concomitant]
     Active Substance: HYDROCORTISONE
  3. CHILDRENS MOTRIN [Concomitant]
     Active Substance: IBUPROFEN
  4. PREDNISOLONE. [Concomitant]
     Active Substance: PREDNISOLONE
  5. SIMETHICONE (DIMETHICONE) [Concomitant]
     Active Substance: DIMETHICONE
  6. NYSTATIN. [Concomitant]
     Active Substance: NYSTATIN
  7. ALBUTEROL. [Concomitant]
     Active Substance: ALBUTEROL
  8. ATROVENT [Concomitant]
     Active Substance: IPRATROPIUM BROMIDE
  9. CIPRO [Concomitant]
     Active Substance: CIPROFLOXACIN HYDROCHLORIDE
  10. PULMICORT TURBUHALER [Suspect]
     Active Substance: BUDESONIDE
     Dosage: UNKNOWN
     Route: 055
  11. POLY-VI-SOL [Concomitant]
     Active Substance: VITAMINS
  12. SYNAGIS [Suspect]
     Active Substance: PALIVIZUMAB
     Dosage: 150MG COMBO (100/50) VIAL
     Route: 030
     Dates: start: 201909
  13. DIURIL [Concomitant]
     Active Substance: CHLOROTHIAZIDE

REACTIONS (1)
  - Gastrostomy tube removal [Unknown]
